FAERS Safety Report 5712098-9 (Version None)
Quarter: 2008Q2

REPORT INFORMATION
  Report Type: 
  Country: None (occurrence: None)
  Receive Date: 20080417
  Receipt Date: 20080409
  Transmission Date: 20081010
  Serious: Yes (Life-Threatening, Hospitalization, Disabling, Other)
  Sender: FDA-Public Use
  Company Number: CERZ-1000176

PATIENT
  Age: 50 Year
  Sex: Female

DRUGS (2)
  1. CEREZYME [Suspect]
     Indication: GAUCHER'S DISEASE
     Dosage: INTRAVENOUS
     Route: 042
     Dates: end: 20070501
  2. WARFARIN SODIUM [Suspect]
     Indication: JUGULAR VEIN THROMBOSIS
     Dates: end: 20070501

REACTIONS (5)
  - CATHETER THROMBOSIS [None]
  - FLUSHING [None]
  - JUGULAR VEIN THROMBOSIS [None]
  - SUPERIOR VENA CAVAL OCCLUSION [None]
  - SWELLING FACE [None]
